FAERS Safety Report 17444155 (Version 1)
Quarter: 2020Q1

REPORT INFORMATION
  Report Type: Spontaneous
  Country: US (occurrence: US)
  Receive Date: 20200221
  Receipt Date: 20200221
  Transmission Date: 20200409
  Serious: No
  Sender: FDA-Public Use
  Company Number: US-ASTRAZENECA-2020SE13316

PATIENT
  Age: 89 Year
  Sex: Female
  Weight: 103 kg

DRUGS (6)
  1. BROVANA [Concomitant]
     Active Substance: ARFORMOTEROL TARTRATE
     Indication: ASTHMA
     Dates: start: 2019
  2. IPRATROPIUM [Concomitant]
     Active Substance: IPRATROPIUM
  3. BUDESOINIDE [Suspect]
     Active Substance: BUDESONIDE
     Route: 055
  4. ALBUTEROL. [Concomitant]
     Active Substance: ALBUTEROL
  5. BROVANA [Concomitant]
     Active Substance: ARFORMOTEROL TARTRATE
     Indication: CHRONIC OBSTRUCTIVE PULMONARY DISEASE
     Dates: start: 2019
  6. BROVANA [Concomitant]
     Active Substance: ARFORMOTEROL TARTRATE
     Indication: EMPHYSEMA
     Dates: start: 2019

REACTIONS (2)
  - Candida infection [Unknown]
  - Wheezing [Unknown]
